FAERS Safety Report 23521321 (Version 3)
Quarter: 2024Q1

REPORT INFORMATION
  Report Type: Spontaneous
  Country: AU (occurrence: AU)
  Receive Date: 20240214
  Receipt Date: 20240216
  Transmission Date: 20240410
  Serious: Yes (Life-Threatening, Hospitalization, Other)
  Sender: FDA-Public Use
  Company Number: None

PATIENT
  Age: 20 Year
  Sex: Male

DRUGS (7)
  1. FLUOXETINE [Interacting]
     Active Substance: FLUOXETINE HYDROCHLORIDE
     Indication: Bipolar disorder
     Dosage: 40 MILLIGRAM, IN MORNING
     Route: 048
  2. FLUOXETINE [Interacting]
     Active Substance: FLUOXETINE HYDROCHLORIDE
     Dosage: 560 MG
     Route: 065
  3. MELATONIN [Interacting]
     Active Substance: MELATONIN
     Indication: Bipolar disorder
     Dosage: 10 MILLIGRAM, NIGHT
     Route: 048
  4. LITHIUM [Interacting]
     Active Substance: LITHIUM
     Indication: Bipolar disorder
     Dosage: 0.7 MMOL/L, UNKNOWN QUANTITY
     Route: 065
  5. NABIXIMOLS [Interacting]
     Active Substance: NABIXIMOLS
     Indication: Product used for unknown indication
     Dosage: DOSE: DELTA9-TETRAHYDROCANNABINOL 28.5 MG/ML+ CANNABIDIOL {1MG/ML
     Route: 048
  6. DRONABINOL [Interacting]
     Active Substance: DRONABINOL
     Indication: Product used for unknown indication
     Dosage: UNK
     Route: 065
  7. CANNABIS SATIVA SUBSP. INDICA TOP [Interacting]
     Active Substance: CANNABIS SATIVA SUBSP. INDICA TOP
     Indication: Product used for unknown indication
     Dosage: UNK, THC
     Route: 065

REACTIONS (5)
  - Generalised tonic-clonic seizure [Unknown]
  - Overdose [Recovered/Resolved]
  - Serotonin syndrome [Recovered/Resolved]
  - Drug interaction [Recovered/Resolved]
  - Off label use [Unknown]
